FAERS Safety Report 9759585 (Version 1)
Quarter: 2013Q4

REPORT INFORMATION
  Report Type: Spontaneous
  Country: US (occurrence: US)
  Receive Date: 20131216
  Receipt Date: 20131216
  Transmission Date: 20140711
  Serious: No
  Sender: FDA-Public Use
  Company Number: US-GILEAD-2010-0028237

PATIENT
  Sex: Female
  Weight: 68.49 kg

DRUGS (23)
  1. LETAIRIS [Suspect]
     Indication: PULMONARY ARTERIAL HYPERTENSION
     Route: 048
     Dates: start: 20100309
  2. FLOLAN [Concomitant]
  3. OXYGEN [Concomitant]
  4. ASPIRIN [Concomitant]
  5. PLAVIX [Concomitant]
  6. SPIRONOLACTONE [Concomitant]
  7. LASIX [Concomitant]
  8. ZOCOR [Concomitant]
  9. ZYRTEC [Concomitant]
  10. OMEPRAZOLE [Concomitant]
  11. ZOFRAN [Concomitant]
  12. IMODIUM [Concomitant]
  13. METAMUCIL [Concomitant]
  14. METHOTREXATE [Concomitant]
  15. AMBIEN [Concomitant]
  16. SYNTHROID [Concomitant]
  17. LYRICA [Concomitant]
  18. TYLENOL [Concomitant]
  19. FOLIC ACID [Concomitant]
  20. IRON [Concomitant]
  21. MULTIVITAMIN [Concomitant]
  22. FISH OIL [Concomitant]
  23. SODIUM CHLORIDE [Concomitant]

REACTIONS (1)
  - Malaise [Unknown]
